FAERS Safety Report 7857378 (Version 14)
Quarter: 2014Q3

REPORT INFORMATION
  Report Type: Report from Study
  Country: JP (occurrence: JP)
  Receive Date: 20110316
  Receipt Date: 20140827
  Transmission Date: 20150326
  Serious: Yes (Hospitalization)
  Sender: FDA-Public Use
  Company Number: JP-JNJFOC-20100700830

PATIENT
  Age: 35 Year
  Sex: Male
  Weight: 62 kg

DRUGS (28)
  1. URSO [Concomitant]
     Active Substance: URSODIOL
     Indication: LIVER DISORDER
     Route: 048
     Dates: start: 20111221
  2. CALBLOCK [Concomitant]
     Active Substance: AZELNIDIPINE
     Indication: HYPERTENSION
     Route: 048
     Dates: start: 20111221, end: 20120116
  3. ZERIT [Concomitant]
     Active Substance: STAVUDINE
     Indication: HIV INFECTION
     Route: 048
     Dates: start: 19990112, end: 20041117
  4. INTELENCE [Suspect]
     Active Substance: ETRAVIRINE
     Indication: HIV INFECTION
     Route: 048
     Dates: start: 20091229
  5. PEGINTERFERON ALFA-2A [Concomitant]
     Active Substance: PEGINTERFERON ALFA-2A
     Indication: HEPATITIS
     Route: 058
     Dates: start: 20120921
  6. PEGINTERFERON ALFA-2A [Concomitant]
     Active Substance: PEGINTERFERON ALFA-2A
     Indication: HEPATITIS
     Route: 058
     Dates: start: 20090401, end: 20120528
  7. CROSS EIGHT M [Concomitant]
     Active Substance: ANTIHEMOPHILIC FACTOR HUMAN
     Indication: FACTOR VIII DEFICIENCY
     Route: 065
     Dates: start: 20110401, end: 20111220
  8. INTELENCE [Suspect]
     Active Substance: ETRAVIRINE
     Indication: HIV INFECTION
     Route: 048
  9. VIRACEPT [Concomitant]
     Active Substance: NELFINAVIR MESYLATE
     Indication: HIV INFECTION
     Route: 048
     Dates: start: 19990112, end: 20050112
  10. EPIVIR [Concomitant]
     Active Substance: LAMIVUDINE
     Indication: HIV INFECTION
     Route: 048
     Dates: start: 19990112, end: 20091228
  11. VIREAD [Concomitant]
     Active Substance: TENOFOVIR DISOPROXIL FUMARATE
     Indication: HIV INFECTION
     Route: 048
     Dates: start: 20041118, end: 20091228
  12. PEGINTERFERON ALFA-2A [Concomitant]
     Active Substance: PEGINTERFERON ALFA-2A
     Indication: HEPATITIS
     Route: 058
     Dates: start: 20120529, end: 20120920
  13. KALETRA [Concomitant]
     Active Substance: LOPINAVIR\RITONAVIR
     Indication: HIV INFECTION
     Route: 048
     Dates: start: 20061101, end: 20091228
  14. CROSS EIGHT M [Concomitant]
     Active Substance: ANTIHEMOPHILIC FACTOR HUMAN
     Indication: FACTOR VIII DEFICIENCY
     Route: 065
     Dates: start: 20120224
  15. AMLODIN OD [Concomitant]
     Active Substance: AMLODIPINE BESYLATE
     Indication: HYPERTENSION
     Route: 048
     Dates: start: 20120119
  16. BLOPRESS [Concomitant]
     Active Substance: CANDESARTAN CILEXETIL
     Indication: HYPERTENSION
     Route: 048
     Dates: start: 200301, end: 20100304
  17. ECARD [Concomitant]
     Active Substance: CANDESARTAN CILEXETIL\HYDROCHLOROTHIAZIDE
     Indication: HYPERTENSION
     Route: 048
     Dates: start: 20111104, end: 20130910
  18. AZILSARTAN [Concomitant]
     Active Substance: AZILSARTAN KAMEDOXOMIL
     Indication: HYPERTENSION
     Route: 048
     Dates: start: 20130911
  19. EPZICOM [Suspect]
     Active Substance: ABACAVIR SULFATE\LAMIVUDINE
     Indication: HIV INFECTION
     Route: 048
     Dates: start: 20091229
  20. KALETRA [Concomitant]
     Active Substance: LOPINAVIR\RITONAVIR
     Indication: HIV INFECTION
     Route: 048
     Dates: start: 20050113, end: 20061031
  21. CROSS EIGHT M [Concomitant]
     Active Substance: ANTIHEMOPHILIC FACTOR HUMAN
     Indication: FACTOR VIII DEFICIENCY
     Route: 065
     Dates: start: 20090401, end: 20111220
  22. URSO [Concomitant]
     Active Substance: URSODIOL
     Indication: LIVER DISORDER
     Route: 048
     Dates: start: 20090401, end: 20110930
  23. ISENTRESS [Suspect]
     Active Substance: RALTEGRAVIR POTASSIUM
     Indication: HIV INFECTION
     Route: 048
     Dates: start: 20091229
  24. AMLODIN OD [Concomitant]
     Active Substance: AMLODIPINE BESYLATE
     Indication: HYPERTENSION
     Route: 048
     Dates: start: 20110304, end: 20110930
  25. BLOPRESS [Concomitant]
     Active Substance: CANDESARTAN CILEXETIL
     Indication: HYPERTENSION
     Route: 048
     Dates: start: 20100315, end: 20111109
  26. EPZICOM [Suspect]
     Active Substance: ABACAVIR SULFATE\LAMIVUDINE
     Indication: HIV INFECTION
     Route: 048
  27. ISENTRESS [Suspect]
     Active Substance: RALTEGRAVIR POTASSIUM
     Indication: HIV INFECTION
     Route: 048
  28. ZYLORIC [Concomitant]
     Active Substance: ALLOPURINOL
     Indication: HYPERURICAEMIA
     Route: 048
     Dates: start: 20020709

REACTIONS (3)
  - Hyperuricaemia [Not Recovered/Not Resolved]
  - Haemorrhagic diathesis [Recovered/Resolved]
  - Liver disorder [Not Recovered/Not Resolved]

NARRATIVE: CASE EVENT DATE: 199910
